FAERS Safety Report 16000029 (Version 1)
Quarter: 2019Q1

REPORT INFORMATION
  Report Type: Spontaneous
  Country: DE (occurrence: DE)
  Receive Date: 20190225
  Receipt Date: 20190225
  Transmission Date: 20190418
  Serious: Yes (Death, Other)
  Sender: FDA-Public Use
  Company Number: DE-PFIZER INC-2019081451

PATIENT
  Age: 8 Decade
  Sex: Female
  Weight: 75 kg

DRUGS (2)
  1. LETROZOLE. [Concomitant]
     Active Substance: LETROZOLE
     Dosage: 2.5 MG, UNK
     Dates: start: 20180510, end: 20181212
  2. IBRANCE [Suspect]
     Active Substance: PALBOCICLIB
     Dosage: 125 MG, UNK
     Dates: start: 20181121, end: 20181212

REACTIONS (9)
  - Pyrexia [Unknown]
  - General physical health deterioration [Unknown]
  - Delirium [Unknown]
  - Decreased appetite [Unknown]
  - Weight decreased [Unknown]
  - Cerebral haemorrhage [Fatal]
  - Chills [Unknown]
  - Epistaxis [Unknown]
  - Gingival bleeding [Unknown]
